FAERS Safety Report 9784632 (Version 1)
Quarter: 2013Q4

REPORT INFORMATION
  Report Type: Spontaneous
  Country: US (occurrence: US)
  Receive Date: 20131226
  Receipt Date: 20131226
  Transmission Date: 20140711
  Serious: Yes (Hospitalization)
  Sender: FDA-Public Use
  Company Number: US-CELGENEUS-163-20785-13123605

PATIENT
  Sex: Female

DRUGS (4)
  1. THALOMID [Suspect]
     Indication: BEHCET^S SYNDROME
     Dosage: 100 MILLIGRAM
     Route: 048
     Dates: start: 200811
  2. THALOMID [Suspect]
     Dosage: 400-200MG
     Route: 048
     Dates: start: 200909
  3. THALOMID [Suspect]
     Dosage: 100-200MG
     Route: 048
     Dates: start: 201104
  4. THALOMID [Suspect]
     Dosage: 100 MILLIGRAM
     Route: 048
     Dates: start: 201112

REACTIONS (1)
  - Eye disorder [Unknown]
